FAERS Safety Report 14618831 (Version 1)
Quarter: 2018Q1

REPORT INFORMATION
  Report Type: Spontaneous
  Country: US (occurrence: US)
  Receive Date: 20180309
  Receipt Date: 20180309
  Transmission Date: 20180509
  Serious: Yes (Hospitalization)
  Sender: FDA-Public Use
  Company Number: US-BIOGEN-2018BV000119

PATIENT
  Age: 18 Year
  Sex: Male

DRUGS (3)
  1. ALPROLIX [Suspect]
     Active Substance: EFTRENONACOG ALFA
     Dosage: PRIOR TO LEAVING HOSPITAL
     Route: 065
     Dates: start: 20171219
  2. ALPROLIX [Suspect]
     Active Substance: EFTRENONACOG ALFA
     Indication: HAEMOPHILIA
     Dosage: AFTER SURGERY SAME DAY
     Route: 065
     Dates: start: 20171218
  3. ALPROLIX [Suspect]
     Active Substance: EFTRENONACOG ALFA
     Route: 065

REACTIONS (1)
  - Wisdom teeth removal [Recovered/Resolved]

NARRATIVE: CASE EVENT DATE: 20171218
